FAERS Safety Report 9260430 (Version 1)
Quarter: 2013Q2

REPORT INFORMATION
  Report Type: Spontaneous
  Country: US (occurrence: US)
  Receive Date: 20130429
  Receipt Date: 20130429
  Transmission Date: 20140414
  Serious: Yes (Other)
  Sender: FDA-Public Use
  Company Number: US-SANOFI-AVENTIS-2013SA042239

PATIENT
  Age: 50 Year
  Sex: Female

DRUGS (1)
  1. LOVENOX [Suspect]
     Indication: FACTOR V DEFICIENCY
     Route: 065

REACTIONS (1)
  - Spinal disorder [Unknown]
